FAERS Safety Report 5368182-5 (Version None)
Quarter: 2007Q2

REPORT INFORMATION
  Report Type: 
  Country: None (occurrence: None)
  Receive Date: 20070625
  Receipt Date: 20070613
  Transmission Date: 20071010
  Serious: Yes (Other)
  Sender: FDA-Public Use
  Company Number: PHBS2007JP02080

PATIENT
  Age: 31 Year
  Sex: Male

DRUGS (10)
  1. CYCLOSPORINE [Suspect]
     Indication: CORD BLOOD TRANSPLANT THERAPY
     Dosage: 60 MG/DAY
     Route: 042
  2. IRRADIATION [Concomitant]
     Indication: CORD BLOOD TRANSPLANT THERAPY
     Dosage: 12 GY
     Dates: start: 20030101
  3. CYCLOPHOSPHAMIDE [Concomitant]
     Indication: CORD BLOOD TRANSPLANT THERAPY
     Dosage: 120 MG/KG
     Dates: start: 20030101
  4. CYTARABINE [Concomitant]
     Indication: CORD BLOOD TRANSPLANT THERAPY
     Dosage: 12000 MG/M2
     Dates: start: 20030101
  5. NEUPOGEN [Concomitant]
     Dosage: 5 UG/KG
     Dates: start: 20030101
  6. METHOTREXATE [Concomitant]
     Indication: GRAFT VERSUS HOST DISEASE
     Dates: start: 20031001
  7. PREDNISOLONE [Concomitant]
     Indication: LUNG INFILTRATION
     Dosage: 1 MG/KG/DAY
     Dates: start: 20031101
  8. PREDNISOLONE [Concomitant]
     Dosage: 7.5 MG/DAY
  9. CYCLOSPORINE [Suspect]
     Dosage: 75 MG/DAY
     Route: 048
  10. CYCLOSPORINE [Suspect]
     Dosage: 50 MG/DAY
     Route: 048

REACTIONS (18)
  - ACUTE GRAFT VERSUS HOST DISEASE IN INTESTINE [None]
  - ACUTE GRAFT VERSUS HOST DISEASE IN SKIN [None]
  - BLOOD AMYLASE INCREASED [None]
  - BLOOD IMMUNOGLOBULIN A DECREASED [None]
  - BLOOD IMMUNOGLOBULIN G DECREASED [None]
  - BLOOD IMMUNOGLOBULIN M DECREASED [None]
  - COUGH [None]
  - CRYPTOGENIC ORGANISING PNEUMONIA [None]
  - CYTOMEGALOVIRUS ANTIGEN POSITIVE [None]
  - CYTOMEGALOVIRUS INFECTION [None]
  - DIARRHOEA [None]
  - DYSPNOEA [None]
  - LIPASE INCREASED [None]
  - LUNG INFILTRATION [None]
  - PANCREATITIS [None]
  - PO2 DECREASED [None]
  - PYREXIA [None]
  - RENAL IMPAIRMENT [None]
